FAERS Safety Report 13332264 (Version 1)
Quarter: 2017Q1

REPORT INFORMATION
  Report Type: Spontaneous
  Country: US (occurrence: US)
  Receive Date: 20170313
  Receipt Date: 20170313
  Transmission Date: 20170428
  Serious: No
  Sender: FDA-Public Use
  Company Number: None

PATIENT
  Age: 78 Year
  Sex: Male

DRUGS (1)
  1. TIKOSYN [Suspect]
     Active Substance: DOFETILIDE
     Indication: ILL-DEFINED DISORDER
     Route: 048
     Dates: start: 20161126, end: 20170301

REACTIONS (3)
  - Pruritus generalised [None]
  - Hypotension [None]
  - Vertigo [None]

NARRATIVE: CASE EVENT DATE: 20170301
